FAERS Safety Report 14578070 (Version 7)
Quarter: 2022Q1

REPORT INFORMATION
  Report Type: Spontaneous
  Country: DK (occurrence: DK)
  Receive Date: 20180227
  Receipt Date: 20220110
  Transmission Date: 20220424
  Serious: Yes (Hospitalization, Other)
  Sender: FDA-Public Use
  Company Number: None

PATIENT
  Age: 81 Year
  Sex: Female
  Weight: 50 kg

DRUGS (23)
  1. IMATINIB [Suspect]
     Active Substance: IMATINIB
     Indication: Product used for unknown indication
     Dosage: 100 MG - 400 MG, TABLET X 3 OR 1 TABLET X 1
     Route: 048
  2. CISPLATIN [Suspect]
     Active Substance: CISPLATIN
     Indication: Chronic lymphocytic leukaemia
     Dosage: UNK
     Route: 065
  3. ALENDRONATE [Suspect]
     Active Substance: ALENDRONATE SODIUM
     Indication: Chronic lymphocytic leukaemia
     Dosage: 70 MILLIGRAM, QW/ START DATE: 09-APR-2015
     Route: 048
  4. ALENDRONATE [Suspect]
     Active Substance: ALENDRONATE SODIUM
     Indication: Osteoporosis
     Dosage: UNK
  5. CARBOPLATIN [Suspect]
     Active Substance: CARBOPLATIN
     Indication: Chronic lymphocytic leukaemia
     Dosage: UNK
     Route: 065
  6. VINORELBINE [Suspect]
     Active Substance: VINORELBINE TARTRATE
     Indication: Chronic lymphocytic leukaemia
     Dosage: UNK
     Route: 065
  7. IRINOTECAN [Suspect]
     Active Substance: IRINOTECAN
     Indication: Product used for unknown indication
     Dosage: UNK
     Route: 065
  8. TEMOZOLOMIDE [Suspect]
     Active Substance: TEMOZOLOMIDE
     Indication: Chronic lymphocytic leukaemia
     Dosage: UNK
     Route: 065
  9. CAPECITABINE [Suspect]
     Active Substance: CAPECITABINE
     Indication: Chronic lymphocytic leukaemia
     Dosage: UNK
     Route: 065
  10. OXALIPLATIN [Suspect]
     Active Substance: OXALIPLATIN
     Indication: Product used for unknown indication
     Dosage: UNK
     Route: 065
  11. PEMETREXED [Suspect]
     Active Substance: PEMETREXED
     Indication: Chronic lymphocytic leukaemia
     Dosage: UNK
     Route: 065
  12. PREDNISOLONE [Suspect]
     Active Substance: PREDNISOLONE
     Indication: Product used for unknown indication
     Dosage: 7.5 MILLIGRAM, QD/ START DATE: 21-OCT-2015
     Route: 048
     Dates: end: 20161031
  13. XGEVA [Suspect]
     Active Substance: DENOSUMAB
     Indication: Metastases to bone
     Dosage: 120 MILLIGRAM/ START DATE: 09-APR-2015
     Route: 058
     Dates: end: 20170305
  14. XGEVA [Suspect]
     Active Substance: DENOSUMAB
     Indication: Chronic lymphocytic leukaemia
     Dosage: 120 MG, EVERY 4 WEEKS/09-APR-2015
     Route: 058
  15. GLIVEC [Suspect]
     Active Substance: IMATINIB MESYLATE
     Indication: Chronic lymphocytic leukaemia
     Dosage: 100 MG - 400 MG, TABLET X 3 OR 1 TABLET X 1/28-OCT-2014
     Route: 048
  16. THALIDOMIDE [Suspect]
     Active Substance: THALIDOMIDE
     Indication: Chronic lymphocytic leukaemia
     Dosage: UNK
     Route: 065
  17. CYCLOPHOSPHAMIDE [Suspect]
     Active Substance: CYCLOPHOSPHAMIDE
     Indication: Chronic lymphocytic leukaemia
     Dosage: UNK
     Route: 065
  18. HERCEPTIN [Suspect]
     Active Substance: TRASTUZUMAB
     Indication: Chronic lymphocytic leukaemia
     Dosage: UNK
     Route: 065
  19. VINCRISTINE [Suspect]
     Active Substance: VINCRISTINE
     Indication: Product used for unknown indication
     Dosage: UNK
     Route: 065
  20. ALKERAN [Suspect]
     Active Substance: MELPHALAN
     Indication: Product used for unknown indication
     Dosage: UNK
     Route: 065
  21. TRASTUZUMAB [Suspect]
     Active Substance: TRASTUZUMAB
     Indication: Metastases to lung
     Dosage: UNK
     Route: 065
  22. CYTARABINE [Suspect]
     Active Substance: CYTARABINE
     Indication: Product used for unknown indication
     Dosage: UNK
  23. BLINATUMOMAB [Suspect]
     Active Substance: BLINATUMOMAB
     Indication: Product used for unknown indication
     Dosage: UNK

REACTIONS (3)
  - Osteonecrosis of jaw [Recovered/Resolved]
  - Jaw operation [Unknown]
  - Off label use [Recovered/Resolved]

NARRATIVE: CASE EVENT DATE: 20150101
